FAERS Safety Report 17841324 (Version 1)
Quarter: 2020Q2

REPORT INFORMATION
  Report Type: Spontaneous
  Country: FR (occurrence: FR)
  Receive Date: 20200529
  Receipt Date: 20200529
  Transmission Date: 20200714
  Serious: Yes (Life-Threatening, Hospitalization)
  Sender: FDA-Public Use
  Company Number: FR-TEVA-2020-FR-1240917

PATIENT
  Age: 81 Year
  Sex: Female
  Weight: 77 kg

DRUGS (11)
  1. CHLORHYDRATE DE TRAMADOL [Suspect]
     Active Substance: TRAMADOL HYDROCHLORIDE
     Indication: PROCEDURAL PAIN
     Dosage: 100 MG
     Route: 048
     Dates: start: 20200226, end: 20200301
  2. KETOPROFENE [Suspect]
     Active Substance: KETOPROFEN
     Indication: PROCEDURAL PAIN
     Route: 048
     Dates: start: 20200226, end: 20200301
  3. SKENAN [Suspect]
     Active Substance: MORPHINE SULFATE
     Indication: PROCEDURAL PAIN
     Dosage: 2 DOSAGE FORMS
     Route: 048
     Dates: start: 20200226, end: 20200301
  4. ESOMEPRAZOLE. [Concomitant]
     Active Substance: ESOMEPRAZOLE MAGNESIUM
  5. PROZAC [Concomitant]
     Active Substance: FLUOXETINE HYDROCHLORIDE
  6. GABAPENTINE [Concomitant]
     Active Substance: GABAPENTIN
  7. LORMETAZEPAM [Suspect]
     Active Substance: LORMETAZEPAM
     Indication: ANXIETY
     Dosage: 2 MG
     Route: 048
     Dates: end: 20200301
  8. PROPRANOLOL [Concomitant]
     Active Substance: PROPRANOLOL HYDROCHLORIDE
  9. CHLORHYDRATE DE MIANSERINE [Concomitant]
     Active Substance: MIANSERIN HYDROCHLORIDE
  10. METHOCARBAMOL. [Concomitant]
     Active Substance: METHOCARBAMOL
  11. NOCERTONE 60 MG, COMPRIME PELLICULE SECABLE [Concomitant]
     Active Substance: OXETORONE

REACTIONS (2)
  - Coma [Recovered/Resolved]
  - Acute kidney injury [Recovered/Resolved]

NARRATIVE: CASE EVENT DATE: 20200301
